FAERS Safety Report 4769122-X (Version None)
Quarter: 2005Q3

REPORT INFORMATION
  Report Type: 
  Country: None (occurrence: None)
  Receive Date: 20050912
  Receipt Date: 20050520
  Transmission Date: 20060218
  Serious: Yes (Hospitalization)
  Sender: FDA-Public Use
  Company Number: 2005-01120

PATIENT
  Age: 74 Year
  Sex: Male
  Weight: 77 kg

DRUGS (9)
  1. VELCADE [Suspect]
     Indication: MANTLE CELL LYMPHOMA
     Dosage: 1.30 MG/M2, IV BOLUS
     Route: 040
     Dates: start: 20050101, end: 20050101
  2. PROSCAR [Concomitant]
  3. FOLIC ACID [Concomitant]
  4. LASIX [Concomitant]
  5. OXYCODONE HCL [Concomitant]
  6. POTASSIUM [Concomitant]
  7. FLOMAX [Concomitant]
  8. EFFEXOR [Concomitant]
  9. TOPROL-XL [Concomitant]

REACTIONS (1)
  - DYSPNOEA [None]
